FAERS Safety Report 5404783-3 (Version None)
Quarter: 2007Q3

REPORT INFORMATION
  Report Type: 
  Country: None (occurrence: None)
  Receive Date: 20070713
  Receipt Date: 20070124
  Transmission Date: 20080115
  Serious: Yes (Hospitalization)
  Sender: FDA-Public Use
  Company Number: REM_00310_2006

PATIENT
  Age: 9 Year
  Sex: Female

DRUGS (6)
  1. REMODULIN [Suspect]
     Indication: PULMONARY HYPERTENSION
     Dosage: 16 NG/KG/MIN (0.016 UG/KG,1 IN  1 MIN),INTRAVENOUS
     Route: 042
     Dates: start: 20050808
  2. BUDESONIDE (BUDESONIDE) (SOLUTION) [Concomitant]
  3. FUROSEMIDE [Concomitant]
  4. LEVALBUTEROL (LEVOBUTEROL HYDROCHLORIDE) (SOLUTION) [Concomitant]
  5. SPIRONOLACTONE [Concomitant]
  6. BOSENTAN (BOSENTAN) [Concomitant]

REACTIONS (2)
  - BACTERIAL SEPSIS [None]
  - CENTRAL LINE INFECTION [None]
